FAERS Safety Report 10662383 (Version 1)
Quarter: 2014Q4

REPORT INFORMATION
  Report Type: Spontaneous
  Country: US (occurrence: None)
  Receive Date: 20141217
  Receipt Date: 20141217
  Transmission Date: 20150529
  Serious: Yes (Other)
  Sender: FDA-Public Use
  Company Number: None

PATIENT
  Age: 3 Year
  Sex: Male
  Weight: 17 kg

DRUGS (1)
  1. MIRALAX [Suspect]
     Active Substance: POLYETHYLENE GLYCOL 3350
     Indication: CONSTIPATION
     Dosage: 2 TEASPOONS, ONCE DAILY, TAKEN BY MOUTH
     Route: 048
     Dates: start: 20140801, end: 20140816

REACTIONS (2)
  - Blood glucose increased [None]
  - No therapeutic response [None]

NARRATIVE: CASE EVENT DATE: 20141216
